FAERS Safety Report 8556297-X (Version None)
Quarter: 2012Q3

REPORT INFORMATION
  Report Type: 
  Country: None (occurrence: None)
  Receive Date: 20120801
  Receipt Date: 20120730
  Transmission Date: 20120928
  Serious: No
  Sender: FDA-Public Use
  Company Number: US-PFIZER INC-2012185505

PATIENT
  Sex: Male

DRUGS (3)
  1. ZOLOFT [Suspect]
     Dosage: 12.5 MG, ALTERNATE DAY
  2. ZOLOFT [Suspect]
     Dosage: 12.5 MG, DAILY
  3. ZOLOFT [Suspect]
     Dosage: 25 MG, DAILY

REACTIONS (3)
  - DRUG INEFFECTIVE [None]
  - INSOMNIA [None]
  - FATIGUE [None]
